FAERS Safety Report 4654863-5 (Version None)
Quarter: 2005Q2

REPORT INFORMATION
  Report Type: 
  Country: None (occurrence: None)
  Receive Date: 20050506
  Receipt Date: 20050321
  Transmission Date: 20051028
  Serious: Yes (Life-Threatening, Hospitalization, Disabling, Other)
  Sender: FDA-Public Use
  Company Number: US-MERCK-0503USA03795

PATIENT
  Age: 79 Year
  Sex: Male
  Weight: 62 kg

DRUGS (9)
  1. ZOCOR [Suspect]
     Indication: HYPERLIPIDAEMIA
     Route: 048
     Dates: start: 20021201, end: 20050101
  2. ZOCOR [Suspect]
     Route: 048
     Dates: start: 20010101, end: 20021201
  3. ZOCOR [Suspect]
     Indication: ARTERIOSCLEROSIS
     Route: 048
     Dates: start: 20021201, end: 20050101
  4. ZOCOR [Suspect]
     Route: 048
     Dates: start: 20010101, end: 20021201
  5. METFORMIN [Concomitant]
     Route: 048
  6. ACTOS [Concomitant]
     Route: 048
  7. GLIPIZIDE [Concomitant]
     Route: 048
  8. CARDIZEM CD [Concomitant]
     Route: 048
  9. MAVIK [Concomitant]
     Route: 048

REACTIONS (2)
  - RENAL FAILURE [None]
  - RHABDOMYOLYSIS [None]
